FAERS Safety Report 20325512 (Version 1)
Quarter: 2022Q1

REPORT INFORMATION
  Report Type: Spontaneous
  Country: DE (occurrence: DE)
  Receive Date: 20220112
  Receipt Date: 20220112
  Transmission Date: 20220423
  Serious: Yes (Other)
  Sender: FDA-Public Use
  Company Number: DE-LUPIN PHARMACEUTICALS INC.-2021-26803

PATIENT
  Sex: Female

DRUGS (6)
  1. LAMOTRIGINE [Suspect]
     Active Substance: LAMOTRIGINE
     Indication: Epilepsy
     Dosage: UNK
     Route: 065
  2. LAMOTRIGINE [Suspect]
     Active Substance: LAMOTRIGINE
     Indication: Tuberous sclerosis complex
  3. RUFINAMIDE [Suspect]
     Active Substance: RUFINAMIDE
     Indication: Epilepsy
     Dosage: UNK
     Route: 065
  4. RUFINAMIDE [Suspect]
     Active Substance: RUFINAMIDE
     Indication: Tuberous sclerosis complex
  5. EVEROLIMUS [Concomitant]
     Active Substance: EVEROLIMUS
     Indication: Epilepsy
     Dosage: 1 MILLIGRAM/SQ. METER (THE DOSE WAS SCHEDULED TO BE INCREASED FURTHER)
     Route: 048
  6. EVEROLIMUS [Concomitant]
     Active Substance: EVEROLIMUS
     Indication: Tuberous sclerosis complex

REACTIONS (1)
  - Therapy non-responder [Unknown]
